FAERS Safety Report 7740075 (Version 3)
Quarter: 2022Q3

REPORT INFORMATION
  Report Type: Spontaneous
  Country: US (occurrence: None)
  Receive Date: 20101227
  Receipt Date: 20220930
  Transmission Date: 20221027
  Serious: Yes (Hospitalization, Other)
  Sender: FDA-Public Use
  Company Number: US-ROCHE-748357

PATIENT
  Sex: Female

DRUGS (4)
  1. BONIVA [Suspect]
     Active Substance: IBANDRONATE SODIUM
     Indication: Osteoporosis
     Route: 048
     Dates: start: 200803, end: 200902
  2. BONIVA [Suspect]
     Active Substance: IBANDRONATE SODIUM
     Indication: Osteopenia
  3. FOSAMAX [Suspect]
     Active Substance: ALENDRONATE SODIUM
     Indication: Osteoporosis
     Route: 065
     Dates: start: 1999, end: 200802
  4. FOSAMAX [Suspect]
     Active Substance: ALENDRONATE SODIUM
     Indication: Osteopenia

REACTIONS (23)
  - Femur fracture [Unknown]
  - Low turnover osteopathy [Unknown]
  - Anxiety [Unknown]
  - Emotional distress [Unknown]
  - Escherichia urinary tract infection [Unknown]
  - Diarrhoea [Unknown]
  - Abdominal pain upper [Unknown]
  - Sinusitis [Unknown]
  - Anaemia [Unknown]
  - Dyspnoea exertional [Unknown]
  - Chest discomfort [Unknown]
  - Dyspnoea [Unknown]
  - Wheezing [Unknown]
  - Pyrexia [Unknown]
  - Asthenia [Unknown]
  - Haemoptysis [Unknown]
  - Cough [Unknown]
  - Intermittent claudication [Unknown]
  - Oedema [Unknown]
  - Orthopnoea [Unknown]
  - Palpitations [Unknown]
  - Dyspnoea paroxysmal nocturnal [Unknown]
  - Fatigue [Unknown]
